FAERS Safety Report 5685826-9 (Version None)
Quarter: 2008Q1

REPORT INFORMATION
  Report Type: 
  Country: None (occurrence: None)
  Receive Date: 20080328
  Receipt Date: 20070914
  Transmission Date: 20080703
  Serious: No
  Sender: FDA-Public Use
  Company Number: US-BAYER-US-2007-034630

PATIENT
  Age: 29 Year
  Sex: Female
  Weight: 82 kg

DRUGS (2)
  1. MIRENA [Suspect]
     Indication: CONTRACEPTION
     Route: 015
     Dates: start: 20061212
  2. VITAMIN TAB [Concomitant]

REACTIONS (3)
  - IUCD COMPLICATION [None]
  - PELVIC PAIN [None]
  - VAGINAL HAEMORRHAGE [None]
